FAERS Safety Report 9237851 (Version 4)
Quarter: 2013Q3

REPORT INFORMATION
  Report Type: Spontaneous
  Country: US (occurrence: US)
  Receive Date: 20130418
  Receipt Date: 20130726
  Transmission Date: 20140515
  Serious: No
  Sender: FDA-Public Use
  Company Number: US-BIOGENIDEC-2013BI035192

PATIENT
  Age: 56 Year
  Sex: Female
  Weight: 117 kg

DRUGS (5)
  1. TYSABRI [Suspect]
     Indication: MULTIPLE SCLEROSIS
     Route: 042
     Dates: start: 20130321
  2. OPANA ER [Concomitant]
     Indication: ARTHRALGIA
  3. OPANA ER [Concomitant]
     Indication: SPONDYLITIS
  4. OXYCODONE [Concomitant]
     Indication: ARTHRALGIA
  5. OXYCODONE [Concomitant]
     Indication: SPONDYLITIS

REACTIONS (26)
  - Dyskinesia [Recovered/Resolved]
  - Influenza like illness [Recovered/Resolved]
  - Muscle twitching [Not Recovered/Not Resolved]
  - Gastric disorder [Recovered/Resolved]
  - Irritability [Recovered/Resolved]
  - Mental impairment [Recovered/Resolved]
  - Concussion [Recovered/Resolved]
  - Fall [Recovered/Resolved]
  - Tremor [Recovered/Resolved]
  - Nervousness [Recovered/Resolved]
  - Rhinorrhoea [Recovered/Resolved]
  - Restless legs syndrome [Recovered/Resolved]
  - Disturbance in attention [Recovered/Resolved]
  - Dysphonia [Recovered/Resolved]
  - Mobility decreased [Recovered/Resolved]
  - Visual acuity reduced [Recovered/Resolved]
  - Balance disorder [Unknown]
  - Muscular weakness [Unknown]
  - Peroneal nerve palsy [Unknown]
  - General symptom [Unknown]
  - Optic nerve disorder [Unknown]
  - Spinal pain [Unknown]
  - Arthralgia [Unknown]
  - Multiple sclerosis relapse [Recovered/Resolved]
  - Headache [Recovered/Resolved]
  - Nausea [Recovered/Resolved]
